FAERS Safety Report 12047618 (Version 1)
Quarter: 2016Q1

REPORT INFORMATION
  Report Type: Report from Study
  Country: US (occurrence: US)
  Receive Date: 20160208
  Receipt Date: 20160208
  Transmission Date: 20160526
  Serious: No
  Sender: FDA-Public Use
  Company Number: US-ABBVIE-15P-163-1372051-00

PATIENT
  Age: 39 Year
  Sex: Female

DRUGS (10)
  1. CALCIUM + VITAMIN D [Concomitant]
     Active Substance: CALCIUM\VITAMIN D
     Indication: BONE DISORDER
     Route: 048
     Dates: start: 2010
  2. UCERIS [Concomitant]
     Active Substance: BUDESONIDE
     Indication: COLITIS ULCERATIVE
     Route: 048
     Dates: start: 20150310, end: 20150402
  3. PREDNISONE ACETATE [Concomitant]
     Active Substance: PREDNISONE ACETATE
     Indication: COLITIS ULCERATIVE
     Route: 048
     Dates: start: 20150403
  4. ENTYVIO [Concomitant]
     Active Substance: VEDOLIZUMAB
     Indication: COLITIS ULCERATIVE
     Route: 041
     Dates: start: 20150406
  5. HUMIRA [Suspect]
     Active Substance: ADALIMUMAB
     Indication: COLITIS ULCERATIVE
     Route: 058
     Dates: start: 20141201
  6. MULTIVITAMIN [Concomitant]
     Active Substance: VITAMINS
     Indication: ROUTINE HEALTH MAINTENANCE
     Route: 048
     Dates: start: 2010
  7. IRON FERROUS [Concomitant]
     Indication: ANAEMIA
     Route: 048
     Dates: start: 20150304
  8. GABAPENTIN. [Concomitant]
     Active Substance: GABAPENTIN
     Indication: PAIN IN EXTREMITY
     Route: 048
     Dates: start: 201411
  9. BENADRYL [Concomitant]
     Active Substance: DIPHENHYDRAMINE HYDROCHLORIDE
     Indication: BLISTER
     Route: 048
     Dates: start: 201411
  10. HUMIRA [Suspect]
     Active Substance: ADALIMUMAB
     Route: 058
     Dates: start: 20141201, end: 20150302

REACTIONS (1)
  - Blister [Recovered/Resolved]

NARRATIVE: CASE EVENT DATE: 20141220
